FAERS Safety Report 25547235 (Version 1)
Quarter: 2025Q3

REPORT INFORMATION
  Report Type: Spontaneous
  Country: EU (occurrence: EU)
  Receive Date: 20250714
  Receipt Date: 20250714
  Transmission Date: 20251021
  Serious: Yes (Hospitalization)
  Sender: CHEPLAPHARM
  Company Number: None

PATIENT
  Sex: Female

DRUGS (4)
  1. QUETIAPINE [Suspect]
     Active Substance: QUETIAPINE
     Route: 048
     Dates: start: 20180526, end: 20180526
  2. ATARAX [Suspect]
     Active Substance: HYDROXYZINE HYDROCHLORIDE
     Route: 048
     Dates: start: 20180526, end: 20180526
  3. OXAZEPAM [Suspect]
     Active Substance: OXAZEPAM
     Route: 048
     Dates: start: 20180526, end: 20180526
  4. PROPIOMAZINE [Suspect]
     Active Substance: PROPIOMAZINE
     Route: 048
     Dates: start: 20180526, end: 20180526

REACTIONS (6)
  - Suicide attempt [Unknown]
  - Intentional overdose [Unknown]
  - Dysarthria [Unknown]
  - Tachycardia [Unknown]
  - Hypotension [Unknown]
  - Miosis [Unknown]

NARRATIVE: CASE EVENT DATE: 20180526
